FAERS Safety Report 11043945 (Version 2)
Quarter: 2015Q2

REPORT INFORMATION
  Report Type: Spontaneous
  Country: IT (occurrence: IT)
  Receive Date: 20150417
  Receipt Date: 20150508
  Transmission Date: 20150821
  Serious: Yes (Other)
  Sender: FDA-Public Use
  Company Number: IT-TEVA-555067ACC

PATIENT
  Age: 40 Year
  Sex: Male

DRUGS (6)
  1. VALIUM [Suspect]
     Active Substance: DIAZEPAM
     Indication: SUICIDE ATTEMPT
     Dosage: 1 DF TOTAL, ORAL DROPS, SOLUTION
     Route: 048
     Dates: start: 20150205, end: 20150205
  2. CITALOPRAM HYDROCHLORIDE [Suspect]
     Active Substance: CITALOPRAM HYDROCHLORIDE
     Indication: SUICIDE ATTEMPT
     Dosage: 1 DF TOTAL (ORAL DROPS, SOLUTION)
     Route: 048
     Dates: start: 20150205, end: 20150205
  3. PANTOPRAZOLE SODIUM SESQUIHYDRATE [Suspect]
     Active Substance: PANTOPRAZOLE SODIUM
     Indication: SUICIDE ATTEMPT
     Dosage: 1 DF TOTAL
     Route: 048
     Dates: start: 20150205, end: 20150205
  4. WELLBUTRIN [Suspect]
     Active Substance: BUPROPION HYDROCHLORIDE
     Indication: SUICIDE ATTEMPT
     Dosage: 1 DF TOTAL (MODIFIED-RELEASE TABLET)
     Route: 048
     Dates: start: 20150205, end: 20150205
  5. HOMER - 875 MG + 125 MG COMPRESSE RIVESTITE CON FILM [Suspect]
     Active Substance: AMOXICILLIN\CLAVULANATE POTASSIUM
     Indication: SUICIDE ATTEMPT
     Dosage: 1 DF TOTAL
     Route: 048
     Dates: start: 20150205, end: 20150205
  6. VOLTAREN [Suspect]
     Active Substance: DICLOFENAC SODIUM
     Indication: SUICIDE ATTEMPT
     Dosage: 1 DF TOTAL
     Route: 048
     Dates: start: 20150205, end: 20150205

REACTIONS (4)
  - Acute psychosis [Recovering/Resolving]
  - Depressed level of consciousness [Recovering/Resolving]
  - Drug abuse [Recovering/Resolving]
  - Suicide attempt [Recovering/Resolving]

NARRATIVE: CASE EVENT DATE: 20150205
